FAERS Safety Report 7347709-8 (Version None)
Quarter: 2011Q1

REPORT INFORMATION
  Report Type: 
  Country: None (occurrence: None)
  Receive Date: 20110311
  Receipt Date: 20110304
  Transmission Date: 20110831
  Serious: Yes (Other)
  Sender: FDA-Public Use
  Company Number: B0703726A

PATIENT
  Age: 60 Year
  Sex: Male
  Weight: 90 kg

DRUGS (8)
  1. NOVOMIX [Concomitant]
     Route: 058
  2. LANSOPRAZOLE [Concomitant]
     Dosage: 30MG PER DAY
  3. ASPIRIN [Concomitant]
     Indication: CARDIOVASCULAR DISORDER
     Route: 048
  4. RAMIPRIL [Concomitant]
     Indication: HYPERTENSION
     Route: 048
  5. FLOLAN [Suspect]
     Route: 042
     Dates: start: 20110203, end: 20110204
  6. THIAMINE [Concomitant]
     Dosage: 200MG PER DAY
     Route: 048
  7. VIT B CO STRONG [Concomitant]
     Route: 048
  8. PARACETAMOL [Concomitant]
     Indication: PAIN
     Route: 048

REACTIONS (1)
  - PURPURA [None]
